FAERS Safety Report 4748351-5 (Version None)
Quarter: 2005Q3

REPORT INFORMATION
  Report Type: 
  Country: None (occurrence: None)
  Receive Date: 20050818
  Receipt Date: 20050513
  Transmission Date: 20060218
  Serious: Yes (Death)
  Sender: FDA-Public Use
  Company Number: US-MERCK-0505USA01946

PATIENT
  Age: 55 Year
  Sex: Female
  Weight: 70 kg

DRUGS (50)
  1. HYDROXYZINE HYDROCHLORIDE [Concomitant]
     Route: 065
     Dates: start: 20000101, end: 20000101
  2. METHOCARBAMOL [Concomitant]
     Route: 065
     Dates: start: 20000101, end: 20010101
  3. AVELOX [Concomitant]
     Route: 065
     Dates: start: 20010101, end: 20010101
  4. CLINDAMYCIN [Concomitant]
     Route: 065
     Dates: start: 20010101, end: 20010101
  5. CLARITIN-D [Concomitant]
     Route: 065
     Dates: start: 20020101, end: 20020101
  6. PROZAC [Concomitant]
     Indication: DEPRESSION
     Route: 065
     Dates: start: 20020101, end: 20020101
  7. LOTREL [Concomitant]
     Route: 065
     Dates: start: 20020101, end: 20020101
  8. CYTUSS HC [Concomitant]
     Route: 065
     Dates: start: 20020101, end: 20020101
  9. MACROBID [Concomitant]
     Route: 065
     Dates: start: 20020101, end: 20030101
  10. PHENAZOPYRIDINE HYDROCHLORIDE [Concomitant]
     Route: 065
     Dates: start: 20020101, end: 20020101
  11. CIPROFLOXACIN HCL [Concomitant]
     Route: 065
     Dates: start: 20020101, end: 20020101
  12. BACTROBAN [Concomitant]
     Route: 065
     Dates: start: 20020101, end: 20020101
  13. COZAAR [Concomitant]
     Route: 065
     Dates: start: 20020101, end: 20020101
  14. ALLEGRA-D [Concomitant]
     Route: 065
     Dates: start: 20020101, end: 20030101
  15. VIOXX [Suspect]
     Indication: BACK PAIN
     Route: 048
     Dates: start: 20000503, end: 20030613
  16. VIOXX [Suspect]
     Route: 048
     Dates: start: 20001011, end: 20030613
  17. VIOXX [Suspect]
     Indication: ARTHRALGIA
     Route: 048
     Dates: start: 20000503, end: 20030613
  18. VIOXX [Suspect]
     Route: 048
     Dates: start: 20001011, end: 20030613
  19. PROMETHAZINE [Concomitant]
     Route: 065
     Dates: start: 20000101, end: 20000101
  20. PROMETHAZINE [Concomitant]
     Route: 065
     Dates: start: 20020101, end: 20030101
  21. ESTRATEST [Concomitant]
     Indication: HORMONE REPLACEMENT THERAPY
     Route: 065
     Dates: start: 20000101, end: 20030101
  22. CHLORAZEPATE [Concomitant]
     Route: 065
     Dates: start: 20000101, end: 20030101
  23. FUROSEMIDE [Concomitant]
     Route: 065
     Dates: start: 20000101, end: 20000101
  24. HYDROCODONE BITARTRATE + ACETAMINOPHEN [Concomitant]
     Indication: PAIN
     Route: 065
     Dates: start: 20000101, end: 20030101
  25. BECONASE AQ [Concomitant]
     Route: 065
     Dates: start: 20000101, end: 20010101
  26. FIORTAL [Concomitant]
     Route: 065
     Dates: start: 20000101, end: 20000101
  27. ZITHROMAX [Concomitant]
     Route: 065
     Dates: start: 20000101, end: 20000101
  28. ZITHROMAX [Concomitant]
     Route: 065
     Dates: start: 20020101, end: 20030101
  29. CEFZIL [Concomitant]
     Route: 065
     Dates: start: 20000101, end: 20000101
  30. KETOCONAZOLE [Concomitant]
     Route: 065
     Dates: start: 20000101, end: 20000101
  31. PREDNISONE [Concomitant]
     Route: 065
     Dates: start: 20000101, end: 20010101
  32. FLUOXETINE [Concomitant]
     Route: 065
     Dates: start: 20020101, end: 20030101
  33. SKELAXIN [Concomitant]
     Route: 065
     Dates: start: 20020101, end: 20030101
  34. ATUSS HC [Concomitant]
     Route: 065
     Dates: start: 20020101, end: 20030101
  35. LEVAQUIN [Concomitant]
     Route: 065
     Dates: start: 20020101, end: 20020101
  36. METHADONE HCL [Concomitant]
     Route: 065
     Dates: start: 20020101, end: 20020101
  37. SYNTEST DS [Concomitant]
     Route: 065
     Dates: start: 20020101, end: 20020101
  38. PEPCID [Concomitant]
     Route: 065
     Dates: start: 20020101, end: 20020101
  39. ACTONEL [Concomitant]
     Route: 065
     Dates: start: 20020101, end: 20020101
  40. PREVACID [Concomitant]
     Route: 065
     Dates: start: 20020101, end: 20030101
  41. DIFLUCAN [Concomitant]
     Route: 065
     Dates: start: 20030101, end: 20030101
  42. NYSTATIN USP (PADDOCK) [Concomitant]
     Route: 065
     Dates: start: 20030101, end: 20030101
  43. TRIAMINICIN TABLETS [Concomitant]
     Route: 065
     Dates: start: 20030101, end: 20030101
  44. HYDROCHLOROTHIAZIDE TABLETS (USP 23) [Concomitant]
     Route: 065
     Dates: start: 20030101, end: 20030101
  45. NULYTELY [Concomitant]
     Route: 065
     Dates: start: 20030101, end: 20030101
  46. TEMAZEPAM [Concomitant]
     Route: 065
     Dates: start: 20030101, end: 20030101
  47. AMBIEN [Concomitant]
     Route: 065
     Dates: start: 20030101, end: 20030101
  48. BIAXIN [Concomitant]
     Route: 065
     Dates: start: 20030101, end: 20030101
  49. LEXAPRO [Concomitant]
     Route: 065
     Dates: start: 20030101, end: 20030101
  50. TRAMADOL MSD [Concomitant]
     Route: 065
     Dates: start: 20030101, end: 20030101

REACTIONS (12)
  - ARTHRITIS [None]
  - BUNION [None]
  - CHRONIC OBSTRUCTIVE PULMONARY DISEASE [None]
  - CONSTIPATION [None]
  - DYSPHAGIA [None]
  - GASTROOESOPHAGEAL REFLUX DISEASE [None]
  - HYPERTENSION [None]
  - HYPERTENSIVE HEART DISEASE [None]
  - MYOCARDIAL INFARCTION [None]
  - NERVOUS SYSTEM DISORDER [None]
  - PULMONARY FIBROSIS [None]
  - SKIN CANCER [None]
